FAERS Safety Report 25265168 (Version 2)
Quarter: 2025Q2

REPORT INFORMATION
  Report Type: Spontaneous
  Country: US (occurrence: US)
  Receive Date: 20250502
  Receipt Date: 20250520
  Transmission Date: 20250717
  Serious: Yes (Hospitalization, Other)
  Sender: UPSHER SMITH LABORATORIES
  Company Number: US-UPSHER-SMITH LABORATORIES, LLC-20250400797

PATIENT
  Sex: Female
  Weight: 88.435 kg

DRUGS (2)
  1. JANTOVEN [Suspect]
     Active Substance: WARFARIN SODIUM
     Indication: Coagulopathy
     Route: 065
     Dates: start: 1992
  2. ELIQUIS [Concomitant]
     Active Substance: APIXABAN
     Indication: Coagulopathy
     Route: 065

REACTIONS (2)
  - Deep vein thrombosis [Unknown]
  - Blood aluminium increased [Unknown]
